FAERS Safety Report 25717836 (Version 1)
Quarter: 2025Q3

REPORT INFORMATION
  Report Type: Spontaneous
  Country: US (occurrence: US)
  Receive Date: 20250822
  Receipt Date: 20250822
  Transmission Date: 20251020
  Serious: Yes (Other)
  Sender: SANOFI AVENTIS
  Company Number: US-SA-2025SA249500

PATIENT
  Age: 63 Year

DRUGS (1)
  1. LANTUS SOLOSTAR [Suspect]
     Active Substance: INSULIN GLARGINE
     Indication: Diabetic nephropathy
     Dosage: 40 U, QD
     Route: 058

REACTIONS (8)
  - Loss of consciousness [Unknown]
  - Septic shock [Unknown]
  - Hepatic failure [Unknown]
  - Cardiac failure [Unknown]
  - Renal failure [Unknown]
  - Organ failure [Unknown]
  - Anal incontinence [Unknown]
  - Gallbladder operation [Unknown]
